FAERS Safety Report 17761655 (Version 1)
Quarter: 2020Q2

REPORT INFORMATION
  Report Type: Spontaneous
  Country: FR (occurrence: FR)
  Receive Date: 20200508
  Receipt Date: 20200508
  Transmission Date: 20200714
  Serious: Yes (Congenital Anomaly)
  Sender: FDA-Public Use
  Company Number: FR-CADILA HEALTHCARE LIMITED-FR-ZYDUS-025077

PATIENT

DRUGS (4)
  1. PAROXETINE. [Suspect]
     Active Substance: PAROXETINE
     Indication: ANXIETY
     Dosage: 20 MILLIGRAM,(INTERVAL :1 DAYS)
     Route: 064
     Dates: start: 20180502, end: 20180706
  2. SERESTA [Suspect]
     Active Substance: OXAZEPAM
     Indication: ANXIETY
     Dosage: 10 MILLIGRAM,(INTERVAL :1 DAYS)
     Route: 064
     Dates: start: 20180629, end: 20180706
  3. LEVETIRACETAM. [Suspect]
     Active Substance: LEVETIRACETAM
     Indication: EPILEPSY
     Dosage: 3.5 GRAM,(INTERVAL :1 DAYS)
     Route: 064
     Dates: start: 20171023, end: 20180706
  4. URBANYL [Suspect]
     Active Substance: CLOBAZAM
     Indication: ANXIETY
     Dosage: 1 DOSAGE FORM,10 TO 20 MG DAILY,(INTERVAL :1 DAYS)
     Route: 064
     Dates: start: 20180502, end: 20180629

REACTIONS (1)
  - Hamartoma [Recovered/Resolved]

NARRATIVE: CASE EVENT DATE: 20180706
